FAERS Safety Report 17266729 (Version 1)
Quarter: 2019Q4

REPORT INFORMATION
  Report Type: Spontaneous
  Country: US (occurrence: US)
  Receive Date: 20191220
  Receipt Date: 20191220
  Transmission Date: 20200122
  Serious: Yes (Hospitalization)
  Sender: FDA-Public Use
  Company Number: None

PATIENT
  Age: 33 Year
  Sex: Male

DRUGS (9)
  1. PREDNISONE. [Concomitant]
     Active Substance: PREDNISONE
  2. TELMISARTAN. [Concomitant]
     Active Substance: TELMISARTAN
  3. STELARA [Suspect]
     Active Substance: USTEKINUMAB
     Dosage: ?          OTHER FREQUENCY:Q12W;?
     Route: 058
     Dates: start: 20190509
  4. PROAIR HFA [Concomitant]
     Active Substance: ALBUTEROL SULFATE
  5. FUROSEMIDE. [Concomitant]
     Active Substance: FUROSEMIDE
  6. COSENTYX [Concomitant]
     Active Substance: SECUKINUMAB
  7. FLUTICASONE SPR [Concomitant]
  8. VIT D [Concomitant]
     Active Substance: VITAMIN D NOS
  9. POT CHLORIDE [Concomitant]
     Active Substance: POTASSIUM CHLORIDE

REACTIONS (1)
  - Bacteraemia [None]

NARRATIVE: CASE EVENT DATE: 20191201
